FAERS Safety Report 22219142 (Version 1)
Quarter: 2023Q2

REPORT INFORMATION
  Report Type: Spontaneous
  Country: CA (occurrence: CA)
  Receive Date: 20230417
  Receipt Date: 20230417
  Transmission Date: 20230721
  Serious: Yes (Other)
  Sender: FDA-Public Use
  Company Number: CA-FreseniusKabi-FK202304834

PATIENT
  Age: 83 Year
  Sex: Female

DRUGS (3)
  1. FENTANYL [Suspect]
     Active Substance: FENTANYL
     Indication: Sedation
     Dosage: DOSAGE FORM: NOT SPECIFIED
     Route: 050
  2. FENTANYL [Suspect]
     Active Substance: FENTANYL
     Indication: Oesophagogastroduodenoscopy
  3. VERSED INJ 1MG/ML [Concomitant]
     Indication: Product used for unknown indication
     Dosage: DOSAGE FORM: LIQUID INTRAMUSCULAR

REACTIONS (2)
  - Depressed level of consciousness [Unknown]
  - Obstructive airways disorder [Unknown]
